FAERS Safety Report 18136453 (Version 1)
Quarter: 2020Q3

REPORT INFORMATION
  Report Type: Spontaneous
  Country: DE (occurrence: DE)
  Receive Date: 20200811
  Receipt Date: 20200811
  Transmission Date: 20201103
  Serious: Yes (Other)
  Sender: FDA-Public Use
  Company Number: DE-BRACCO-2020DE03228

PATIENT
  Age: 56 Year
  Sex: Female
  Weight: 67 kg

DRUGS (2)
  1. CORTISON [Concomitant]
     Active Substance: CORTISONE ACETATE
     Indication: PREMEDICATION
  2. PROHANCE [Suspect]
     Active Substance: GADOTERIDOL
     Indication: MAGNETIC RESONANCE IMAGING BREAST
     Dosage: UNKNOWN, TWO ADMINISTRATIONS WITHIN THE ABOVE PERIOD
     Route: 042
     Dates: start: 20190702, end: 20200311

REACTIONS (5)
  - Anaphylactic shock [Recovered/Resolved]
  - Skin irritation [Recovered/Resolved]
  - Hypertension [Unknown]
  - Renal disorder [Recovered/Resolved]
  - Vitreous opacities [Recovered/Resolved]

NARRATIVE: CASE EVENT DATE: 20190702
